FAERS Safety Report 21012613 (Version 1)
Quarter: 2022Q2

REPORT INFORMATION
  Report Type: Spontaneous
  Country: US (occurrence: US)
  Receive Date: 20220627
  Receipt Date: 20220627
  Transmission Date: 20220721
  Serious: No
  Sender: FDA-Public Use
  Company Number: US-ALMIRALL, LLC-2022AQU000121

PATIENT

DRUGS (2)
  1. CORDRAN [Suspect]
     Active Substance: FLURANDRENOLIDE
     Indication: Product used for unknown indication
     Dosage: UNK
     Route: 061
     Dates: start: 202110
  2. CORDRAN [Suspect]
     Active Substance: FLURANDRENOLIDE
     Dosage: UNK
     Route: 061
     Dates: start: 20220126

REACTIONS (11)
  - Swelling [Recovered/Resolved]
  - Eczema [Recovered/Resolved]
  - Skin fissures [Recovered/Resolved]
  - Pigmentation disorder [Recovered/Resolved]
  - Ingrown hair [Recovered/Resolved]
  - Sensitive skin [Recovered/Resolved]
  - Skin discolouration [Recovered/Resolved]
  - Papule [Recovered/Resolved]
  - Skin exfoliation [Recovered/Resolved]
  - Skin burning sensation [Recovered/Resolved]
  - Product quality issue [Unknown]

NARRATIVE: CASE EVENT DATE: 20220126
